FAERS Safety Report 14200474 (Version 1)
Quarter: 2017Q4

REPORT INFORMATION
  Report Type: Spontaneous
  Country: US (occurrence: US)
  Receive Date: 20171117
  Receipt Date: 20171117
  Transmission Date: 20180321
  Serious: No
  Sender: FDA-Public Use
  Company Number: US-NOVOPROD-526507

PATIENT
  Age: 73 Year
  Sex: Female
  Weight: 102.6 kg

DRUGS (2)
  1. NOVOLOG [Suspect]
     Active Substance: INSULIN ASPART
     Indication: TYPE 2 DIABETES MELLITUS
     Dosage: 30 U, TID
     Route: 058
  2. LANTUS [Suspect]
     Active Substance: INSULIN GLARGINE
     Indication: TYPE 2 DIABETES MELLITUS
     Dosage: 80 U, DAILY AT NIGHT
     Route: 058
     Dates: start: 2000

REACTIONS (1)
  - Granuloma annulare [Not Recovered/Not Resolved]

NARRATIVE: CASE EVENT DATE: 2012
